FAERS Safety Report 23875975 (Version 2)
Quarter: 2024Q2

REPORT INFORMATION
  Report Type: Spontaneous
  Country: US (occurrence: US)
  Receive Date: 20240520
  Receipt Date: 20240621
  Transmission Date: 20240716
  Serious: No
  Sender: FDA-Public Use
  Company Number: US-SA-SAC20240517000306

PATIENT
  Age: 92 Year
  Sex: Male
  Weight: 59 kg

DRUGS (1)
  1. DUPIXENT [Suspect]
     Active Substance: DUPILUMAB
     Indication: Illness
     Dosage: UNK UNK, QOW
     Route: 058
     Dates: start: 202308

REACTIONS (2)
  - Vision blurred [Not Recovered/Not Resolved]
  - Eye irritation [Unknown]

NARRATIVE: CASE EVENT DATE: 20240101
